FAERS Safety Report 11665095 (Version 2)
Quarter: 2015Q4

REPORT INFORMATION
  Report Type: Spontaneous
  Country: US (occurrence: US)
  Receive Date: 20151027
  Receipt Date: 20151118
  Transmission Date: 20160304
  Serious: Yes (Hospitalization, Other)
  Sender: FDA-Public Use
  Company Number: US-SMITH AND NEPHEW, INC-2015SMT00432

PATIENT
  Age: 72 Year
  Sex: Male
  Weight: 101.13 kg

DRUGS (1)
  1. REGRANEX [Suspect]
     Active Substance: BECAPLERMIN
     Indication: DIABETIC FOOT
     Dosage: UNK UNK, 1X/DAY
     Route: 061
     Dates: start: 201508, end: 20150907

REACTIONS (10)
  - Streptococcal infection [Recovered/Resolved with Sequelae]
  - Abscess limb [Recovered/Resolved with Sequelae]
  - Blood urea increased [Recovering/Resolving]
  - Sleep apnoea syndrome [Unknown]
  - Gangrene [Recovered/Resolved with Sequelae]
  - Cellulitis [Recovered/Resolved with Sequelae]
  - Blood creatinine increased [Recovering/Resolving]
  - Leukocytosis [Recovering/Resolving]
  - Dyslipidaemia [Unknown]
  - Foot amputation [Recovered/Resolved with Sequelae]

NARRATIVE: CASE EVENT DATE: 2015
